FAERS Safety Report 7673223-6 (Version None)
Quarter: 2011Q3

REPORT INFORMATION
  Report Type: 
  Country: None (occurrence: None)
  Receive Date: 20110810
  Receipt Date: 20110727
  Transmission Date: 20111222
  Serious: Yes (Hospitalization)
  Sender: FDA-Public Use
  Company Number: US-DENTSPLY-2011-0064-EUR

PATIENT
  Age: 17 Year
  Sex: Female
  Weight: 44 kg

DRUGS (4)
  1. EPINEPHRINE [Suspect]
     Dates: start: 20110708
  2. LIDOCAINE [Suspect]
     Dates: start: 20110708
  3. SCHEIN BENZO GEL BUBBLE GUM [Suspect]
     Route: 061
     Dates: start: 20110708
  4. CLINDAMYCIN [Concomitant]
     Dates: start: 20110708

REACTIONS (5)
  - FEELING ABNORMAL [None]
  - ERYTHEMA [None]
  - NAUSEA [None]
  - RASH [None]
  - DYSPNOEA [None]
